FAERS Safety Report 4807403-1 (Version None)
Quarter: 2005Q4

REPORT INFORMATION
  Report Type: 
  Country: None (occurrence: None)
  Receive Date: 20051024
  Receipt Date: 20050705
  Transmission Date: 20060501
  Serious: Yes (Death, Hospitalization)
  Sender: FDA-Public Use
  Company Number: US-MERCK-0507USA00663

PATIENT
  Age: 66 Year
  Sex: Male
  Weight: 80 kg

DRUGS (9)
  1. VIOXX [Suspect]
     Indication: ARTHRITIS
     Route: 048
     Dates: start: 19991129, end: 20030625
  2. VIOXX [Suspect]
     Indication: OSTEOARTHRITIS
     Route: 048
     Dates: start: 19991129, end: 20030625
  3. ISORDIL [Concomitant]
     Route: 065
  4. LASIX [Concomitant]
     Route: 065
  5. VALIUM [Concomitant]
     Route: 065
  6. PERCOCET [Concomitant]
     Route: 065
  7. PREDNISONE [Concomitant]
     Route: 065
  8. LOTENSIN [Concomitant]
     Route: 065
  9. CARDIZEM [Concomitant]
     Route: 065

REACTIONS (6)
  - ACUTE MYOCARDIAL INFARCTION [None]
  - BRAIN DAMAGE [None]
  - CARDIAC ARREST [None]
  - FRACTURE DELAYED UNION [None]
  - HUMERUS FRACTURE [None]
  - LOWER GASTROINTESTINAL HAEMORRHAGE [None]
